FAERS Safety Report 9738500 (Version 1)
Quarter: 2013Q4

REPORT INFORMATION
  Report Type: Spontaneous
  Country: FR (occurrence: FR)
  Receive Date: 20131208
  Receipt Date: 20131208
  Transmission Date: 20140711
  Serious: Yes (Death)
  Sender: FDA-Public Use
  Company Number: FR-ROCHE-1313436

PATIENT
  Age: 72 Year
  Sex: Male

DRUGS (4)
  1. CELLCEPT [Suspect]
     Indication: LUNG TRANSPLANT REJECTION
     Route: 048
     Dates: start: 201006, end: 20131029
  2. PROGRAF [Suspect]
     Indication: LUNG TRANSPLANT REJECTION
     Route: 048
     Dates: start: 201006, end: 20131029
  3. CORTANCYL [Suspect]
     Indication: LUNG TRANSPLANT REJECTION
     Route: 065
     Dates: start: 201006
  4. CERTICAN [Suspect]
     Indication: LUNG TRANSPLANT REJECTION
     Route: 048
     Dates: start: 20110505, end: 20131029

REACTIONS (1)
  - Metastasis [Fatal]
